FAERS Safety Report 9431867 (Version 1)
Quarter: 2013Q3

REPORT INFORMATION
  Report Type: Report from Study
  Country: FR (occurrence: FR)
  Receive Date: 20130731
  Receipt Date: 20130731
  Transmission Date: 20140515
  Serious: Yes (Other)
  Sender: FDA-Public Use
  Company Number: PHHY2013FR080101

PATIENT
  Age: 91 Year
  Sex: Female

DRUGS (7)
  1. ACLASTA/ZOLEDRONATE [Suspect]
     Indication: OSTEOPOROSIS
     Dosage: UNK UKN, UNK
     Route: 042
     Dates: start: 201102
  2. ACLASTA/ZOLEDRONATE [Suspect]
     Dosage: UNK UKN, UNK
     Route: 042
     Dates: start: 201202
  3. LEVOTHYROX [Concomitant]
     Dosage: UNK
     Dates: start: 2005
  4. INEXIUM [Concomitant]
     Dosage: UNK
  5. OROCAL [Concomitant]
     Dosage: UNK UKN, UNK
     Dates: start: 2011
  6. UVEDOSE [Concomitant]
     Dosage: UNK UKN, UNK
     Dates: start: 2011
  7. IBUPROFENE [Concomitant]
     Dosage: UNK UKN, UNK
     Dates: start: 2013

REACTIONS (2)
  - Fall [Unknown]
  - Spinal fracture [Unknown]
